FAERS Safety Report 21571097 (Version 1)
Quarter: 2022Q4

REPORT INFORMATION
  Report Type: Spontaneous
  Country: FR (occurrence: FR)
  Receive Date: 20221109
  Receipt Date: 20221109
  Transmission Date: 20230113
  Serious: Yes (Hospitalization, Other)
  Sender: FDA-Public Use
  Company Number: FR-AstraZeneca-2020SE30428

PATIENT
  Age: 69 Year
  Sex: Female

DRUGS (7)
  1. LETROZOLE [Suspect]
     Active Substance: LETROZOLE
     Indication: Breast cancer metastatic
     Dosage: UNK
     Route: 065
     Dates: start: 20171011
  2. PROPOFOL [Suspect]
     Active Substance: PROPOFOL
     Indication: Breast cancer metastatic
     Dosage: ONCE/SINGLE ADMINISTRATION
     Route: 042
     Dates: start: 20170725, end: 20170725
  3. PROPOFOL [Suspect]
     Active Substance: PROPOFOL
     Dosage: 250.0MG ONCE/SINGLE ADMINISTRATION
     Route: 042
     Dates: start: 20181022, end: 20181022
  4. TRACRIUM [Suspect]
     Active Substance: ATRACURIUM BESYLATE
     Indication: Breast cancer metastatic
     Dosage: 40.0MG ONCE/SINGLE ADMINISTRATION
     Route: 065
     Dates: start: 20181022, end: 20181022
  5. SUFENTANIL [Suspect]
     Active Substance: SUFENTANIL
     Indication: Breast cancer metastatic
     Dosage: ONCE/SINGLE ADMINISTRATION
     Route: 065
     Dates: start: 20170725, end: 20170725
  6. SUFENTANIL [Suspect]
     Active Substance: SUFENTANIL
     Dosage: 15.0UG ONCE/SINGLE ADMINISTRATION
     Route: 065
     Dates: start: 20181022, end: 20181022
  7. PALBOCICLIB [Suspect]
     Active Substance: PALBOCICLIB
     Indication: Breast cancer metastatic
     Dosage: 100 MG
     Route: 048
     Dates: start: 20171010

REACTIONS (2)
  - Anaphylactic shock [Recovered/Resolved]
  - Off label use [Unknown]

NARRATIVE: CASE EVENT DATE: 20181022
